FAERS Safety Report 23292368 (Version 1)
Quarter: 2023Q4

REPORT INFORMATION
  Report Type: Spontaneous
  Country: US (occurrence: US)
  Receive Date: 20231213
  Receipt Date: 20231213
  Transmission Date: 20240110
  Serious: Yes (Life-Threatening, Hospitalization, Other)
  Sender: FDA-Public Use
  Company Number: US-PFIZER INC-PV202300198102

PATIENT
  Age: 30 Year
  Sex: Female

DRUGS (12)
  1. LORAZEPAM [Suspect]
     Active Substance: LORAZEPAM
     Dosage: UNK
  2. SERTRALINE [Suspect]
     Active Substance: SERTRALINE HYDROCHLORIDE
     Dosage: UNK
  3. BUPROPION [Suspect]
     Active Substance: BUPROPION
     Dosage: UNK
  4. CITALOPRAM [Suspect]
     Active Substance: CITALOPRAM HYDROBROMIDE
     Dosage: UNK
  5. FLUOXETINE [Suspect]
     Active Substance: FLUOXETINE HYDROCHLORIDE
     Dosage: UNK
  6. DULOXETINE [Suspect]
     Active Substance: DULOXETINE
     Dosage: UNK
  7. TRAZODONE [Suspect]
     Active Substance: TRAZODONE HYDROCHLORIDE
     Dosage: UNK
  8. ARIPIPRAZOLE [Suspect]
     Active Substance: ARIPIPRAZOLE
     Dosage: UNK
  9. QUETIAPINE [Suspect]
     Active Substance: QUETIAPINE
     Dosage: UNK
  10. CLONAZEPAM [Suspect]
     Active Substance: CLONAZEPAM
     Dosage: UNK
  11. LAMOTRIGINE [Suspect]
     Active Substance: LAMOTRIGINE
     Dosage: UNK
  12. LITHIUM [Suspect]
     Active Substance: LITHIUM
     Dosage: UNK

REACTIONS (1)
  - Drug ineffective [Recovered/Resolved]
